FAERS Safety Report 21243276 (Version 2)
Quarter: 2022Q3

REPORT INFORMATION
  Report Type: Spontaneous
  Country: US (occurrence: US)
  Receive Date: 20220823
  Receipt Date: 20220830
  Transmission Date: 20221027
  Serious: No
  Sender: FDA-Public Use
  Company Number: US-BAYER-2022A116029

PATIENT
  Age: 11 Year
  Sex: Male

DRUGS (1)
  1. KOGENATE FS [Suspect]
     Active Substance: ANTIHEMOPHILIC FACTOR, HUMAN RECOMBINANT
     Dosage: 1917 UNITS (RANGE 1900-2150) PRN DAILY
     Route: 042

REACTIONS (2)
  - Limb injury [None]
  - Fall [None]

NARRATIVE: CASE EVENT DATE: 20220816
